FAERS Safety Report 5087239-X (Version None)
Quarter: 2006Q3

REPORT INFORMATION
  Report Type: 
  Country: None (occurrence: None)
  Receive Date: 20060821
  Receipt Date: 20060808
  Transmission Date: 20061208
  Serious: Yes (Other)
  Sender: FDA-Public Use
  Company Number: CAWYE630309AUG06

PATIENT
  Age: 3 Month
  Sex: Male

DRUGS (2)
  1. EFFEXOR XR [Suspect]
     Dosage: TRANSMAMMARY; TAPERED DOWN; SEE IMAGE
     Route: 063
     Dates: start: 20050101, end: 20060101
  2. EFFEXOR XR [Suspect]
     Dosage: TRANSMAMMARY; TAPERED DOWN; SEE IMAGE
     Route: 063
     Dates: start: 20060101

REACTIONS (4)
  - DRUG EXPOSURE VIA BREAST MILK [None]
  - MULTIPLE FRACTURES [None]
  - RIB FRACTURE [None]
  - UPPER LIMB FRACTURE [None]
